FAERS Safety Report 15880005 (Version 3)
Quarter: 2019Q1

REPORT INFORMATION
  Report Type: Report from Study
  Country: GB (occurrence: GB)
  Receive Date: 20190128
  Receipt Date: 20190210
  Transmission Date: 20190417
  Serious: Yes (Other)
  Sender: FDA-Public Use
  Company Number: PHHY2019GB012441

PATIENT
  Sex: Female
  Weight: 20 kg

DRUGS (1)
  1. OMNITROPE [Suspect]
     Active Substance: SOMATROPIN
     Indication: CRANIOPHARYNGIOMA
     Dosage: 0.6 MG, QD 15MG/ 1.5ML
     Route: 058
     Dates: start: 20190108

REACTIONS (2)
  - Neoplasm malignant [Unknown]
  - Headache [Unknown]
